FAERS Safety Report 9486002 (Version 1)
Quarter: 2013Q3

REPORT INFORMATION
  Report Type: Spontaneous
  Country: TR (occurrence: TR)
  Receive Date: 20130829
  Receipt Date: 20130829
  Transmission Date: 20140515
  Serious: Yes (Life-Threatening, Hospitalization, Other)
  Sender: FDA-Public Use
  Company Number: TR-JNJFOC-20130808914

PATIENT
  Sex: 0

DRUGS (11)
  1. DOXORUBICIN [Suspect]
     Indication: NON-HODGKIN^S LYMPHOMA
     Dosage: 4-5 DAY
     Route: 042
  2. DEXAMETHASONE [Suspect]
     Indication: NON-HODGKIN^S LYMPHOMA
     Dosage: 1-5 DAY
     Route: 065
  3. VINCRISTINE [Suspect]
     Indication: NON-HODGKIN^S LYMPHOMA
     Dosage: 1ST DAY
     Route: 065
  4. METHOTREXATE [Suspect]
     Indication: NON-HODGKIN^S LYMPHOMA
     Dosage: 5 G/M2; 1ST DAY
     Route: 037
  5. CYCLOPHOSPHAMIDE [Suspect]
     Indication: NON-HODGKIN^S LYMPHOMA
     Dosage: 1-5 DAY
     Route: 065
  6. ETOPOSIDE [Suspect]
     Indication: NON-HODGKIN^S LYMPHOMA
     Dosage: 4-5 DAY
     Route: 065
  7. ARA-C [Suspect]
     Indication: NON-HODGKIN^S LYMPHOMA
     Dosage: 4-5 DAY
     Route: 037
  8. IFOSFAMIDE [Suspect]
     Indication: NON-HODGKIN^S LYMPHOMA
     Dosage: 1-5 DAY
     Route: 065
  9. DIPEPTIVEN [Suspect]
     Indication: PROPHYLAXIS
     Dosage: 0.4 G/KG INFUSED WITHIN A PERIOD OF 4 HOURS
     Route: 042
  10. PREDNISOLONE [Suspect]
     Indication: NON-HODGKIN^S LYMPHOMA
     Dosage: 1ST AND 5TH DAY
     Route: 037
  11. GRANULOCYTE COLONY STIMULATING FACTOR [Concomitant]
     Indication: PRODUCT USED FOR UNKNOWN INDICATION
     Dosage: 1BEGININING 24 HOURS AFTER CHEMOTHERAPY WAS COMPLETED
     Route: 058

REACTIONS (7)
  - Hepatotoxicity [Unknown]
  - Mucosal inflammation [Unknown]
  - Diarrhoea [Unknown]
  - Vomiting [Unknown]
  - Febrile neutropenia [Unknown]
  - Pyrexia [Unknown]
  - Hospitalisation [Unknown]
